FAERS Safety Report 21946656 (Version 1)
Quarter: 2023Q1

REPORT INFORMATION
  Report Type: Spontaneous
  Country: JP (occurrence: None)
  Receive Date: 20230202
  Receipt Date: 20230202
  Transmission Date: 20230417
  Serious: Yes (Other)
  Sender: FDA-Public Use
  Company Number: 2022A405950

PATIENT
  Age: 21452 Day
  Sex: Female
  Weight: 50 kg

DRUGS (1)
  1. NEXIUM [Suspect]
     Active Substance: ESOMEPRAZOLE MAGNESIUM
     Indication: Gastrooesophageal reflux disease
     Dosage: 20.0MG AS REQUIRED
     Route: 048
     Dates: end: 20221212

REACTIONS (2)
  - Hyperprolactinaemia [Unknown]
  - Alopecia [Unknown]

NARRATIVE: CASE EVENT DATE: 20220826
